FAERS Safety Report 6546475-3 (Version None)
Quarter: 2010Q1

REPORT INFORMATION
  Report Type: 
  Country: None (occurrence: None)
  Receive Date: 20100122
  Receipt Date: 20100113
  Transmission Date: 20100710
  Serious: Yes (Other)
  Sender: FDA-Public Use
  Company Number: PHHY2009BE50754

PATIENT
  Age: 11 Year
  Sex: Male

DRUGS (2)
  1. RITALIN [Suspect]
     Indication: ATTENTION DEFICIT/HYPERACTIVITY DISORDER
     Dosage: 20 MG/DAY
     Dates: end: 20091023
  2. RITALIN [Suspect]
     Dosage: 30 MG/DAY

REACTIONS (10)
  - ABDOMINAL PAIN [None]
  - ANXIETY [None]
  - CRYING [None]
  - DECREASED APPETITE [None]
  - HEADACHE [None]
  - HEART RATE IRREGULAR [None]
  - LEUKOPENIA [None]
  - NEUTROPENIA [None]
  - SLEEP DISORDER [None]
  - WEIGHT DECREASED [None]
